FAERS Safety Report 15144068 (Version 9)
Quarter: 2019Q3

REPORT INFORMATION
  Report Type: Report from Study
  Country: FR (occurrence: FR)
  Receive Date: 20180713
  Receipt Date: 20190716
  Transmission Date: 20191004
  Serious: Yes (Life-Threatening, Hospitalization)
  Sender: FDA-Public Use
  Company Number: FR-PFIZER INC-2018278106

PATIENT
  Age: 60 Year
  Sex: Female
  Weight: 61 kg

DRUGS (9)
  1. SUNITINIB MALATE. [Suspect]
     Active Substance: SUNITINIB MALATE
     Dosage: 37.5 MG, DAILY (1 IN 1 D)
     Route: 048
     Dates: start: 20180930, end: 20181009
  2. INNOHEP [Suspect]
     Active Substance: TINZAPARIN SODIUM
     Dosage: 0.5 ML, 1 IN 1D
     Route: 058
     Dates: start: 20180929
  3. SUNITINIB MALATE. [Suspect]
     Active Substance: SUNITINIB MALATE
     Indication: CLEAR CELL RENAL CELL CARCINOMA
     Dosage: 50 MG, 1 D (4 WEEKS ON/2 WEEKS OFF)
     Route: 048
     Dates: start: 20180622, end: 20180701
  4. SUNITINIB MALATE. [Suspect]
     Active Substance: SUNITINIB MALATE
     Dosage: 37.5 MG, DAILY (1 IN 1 D)
     Route: 048
     Dates: start: 20180724, end: 20180816
  5. INNOHEP [Suspect]
     Active Substance: TINZAPARIN SODIUM
     Indication: THROMBOSIS
     Dosage: 0.5 ML, 1 IN 1D
     Route: 058
     Dates: start: 20180210, end: 20180921
  6. LOVENOX [Suspect]
     Active Substance: ENOXAPARIN SODIUM
     Indication: THROMBOSIS
     Dosage: 4000 IU, UNK
     Route: 058
     Dates: start: 20180922, end: 20180922
  7. ESOMEPRAZOLE. [Concomitant]
     Active Substance: ESOMEPRAZOLE MAGNESIUM
  8. SUNITINIB MALATE. [Suspect]
     Active Substance: SUNITINIB MALATE
     Dosage: 37.5 MG, DAILY (1 IN 1 D)
     Route: 048
     Dates: start: 20180905, end: 20180920
  9. SUNITINIB MALATE. [Suspect]
     Active Substance: SUNITINIB MALATE
     Dosage: 37.5 MG, DAILY (1 IN 1 D)
     Route: 048
     Dates: start: 20181030, end: 20181127

REACTIONS (3)
  - Haemothorax [Recovered/Resolved with Sequelae]
  - Pneumothorax [Recovered/Resolved]
  - Dehydration [Recovered/Resolved]

NARRATIVE: CASE EVENT DATE: 20180702
